FAERS Safety Report 9479617 (Version 2)
Quarter: 2013Q3

REPORT INFORMATION
  Report Type: Spontaneous
  Country: JP (occurrence: JP)
  Receive Date: 20130827
  Receipt Date: 20130827
  Transmission Date: 20140515
  Serious: Yes (Death)
  Sender: FDA-Public Use
  Company Number: PHHY2013JP086453

PATIENT
  Age: 86 Year
  Sex: Male
  Weight: 49 kg

DRUGS (4)
  1. VOLTAREN [Suspect]
     Indication: PYREXIA
     Dosage: 25 MG, ONE TO TWO
     Route: 054
     Dates: start: 20120829, end: 20121013
  2. METILON [Suspect]
     Indication: PYREXIA
     Dosage: 500 MG, DAILY
     Route: 030
     Dates: start: 20121011, end: 20121013
  3. PIPERACILLIN SODIUM [Concomitant]
     Indication: PNEUMONIA ASPIRATION
     Dosage: 1 G,
     Dates: start: 20121008, end: 20121009
  4. ALBUMINAR [Concomitant]
     Indication: OEDEMA
     Dosage: 150 ML,
     Dates: start: 20121010, end: 20121012

REACTIONS (6)
  - Toxic epidermal necrolysis [Fatal]
  - Blister [Fatal]
  - Erythema [Fatal]
  - Skin erosion [Fatal]
  - Nikolsky^s sign [Fatal]
  - C-reactive protein increased [Fatal]
